FAERS Safety Report 10046638 (Version 1)
Quarter: 2014Q1

REPORT INFORMATION
  Report Type: Spontaneous
  Country: US (occurrence: JP)
  Receive Date: 20140331
  Receipt Date: 20140331
  Transmission Date: 20141002
  Serious: Yes (Other)
  Sender: FDA-Public Use
  Company Number: 2013SP008388

PATIENT
  Age: 59 Year
  Sex: Male

DRUGS (1)
  1. METHOTREXATE [Suspect]
     Indication: CENTRAL NERVOUS SYSTEM LYMPHOMA
     Route: 042
     Dates: start: 20131125

REACTIONS (5)
  - Renal disorder [Not Recovered/Not Resolved]
  - Bone marrow failure [Unknown]
  - Drug level increased [Unknown]
  - Nausea [Unknown]
  - Urine output decreased [Not Recovered/Not Resolved]
